FAERS Safety Report 13441545 (Version 1)
Quarter: 2017Q2

REPORT INFORMATION
  Report Type: Spontaneous
  Country: FR (occurrence: FR)
  Receive Date: 20170414
  Receipt Date: 20170414
  Transmission Date: 20170830
  Serious: Yes (Hospitalization, Other)
  Sender: FDA-Public Use
  Company Number: PHHY2017FR052644

PATIENT
  Sex: Male

DRUGS (1)
  1. LAMISIL [Suspect]
     Active Substance: TERBINAFINE HYDROCHLORIDE
     Indication: ONYCHOMYCOSIS
     Dosage: UNK
     Route: 065
     Dates: end: 20160618

REACTIONS (12)
  - Cell death [Unknown]
  - Hepatitis acute [Unknown]
  - Blood bilirubin increased [Unknown]
  - Asthenia [Unknown]
  - Hepatitis cholestatic [Unknown]
  - Chronic hepatitis B [Unknown]
  - Cholestatic liver injury [Unknown]
  - Myalgia [Unknown]
  - Acute hepatitis B [Unknown]
  - Abdominal pain upper [Unknown]
  - Hepatocellular injury [Unknown]
  - Decreased appetite [Unknown]
